FAERS Safety Report 14138561 (Version 3)
Quarter: 2017Q4

REPORT INFORMATION
  Report Type: Report from Study
  Country: AU (occurrence: AU)
  Receive Date: 20171027
  Receipt Date: 20171205
  Transmission Date: 20180321
  Serious: Yes (Hospitalization)
  Sender: FDA-Public Use
  Company Number: PHHY2017AU156817

PATIENT
  Sex: Female
  Weight: 93 kg

DRUGS (2)
  1. GILENYA [Suspect]
     Active Substance: FINGOLIMOD HYDROCHLORIDE
     Indication: RELAPSING-REMITTING MULTIPLE SCLEROSIS
     Dosage: UNK
     Route: 048
     Dates: start: 201706
  2. VITAMIN D [Concomitant]
     Active Substance: CHOLECALCIFEROL
     Indication: PRODUCT USED FOR UNKNOWN INDICATION
     Route: 065

REACTIONS (8)
  - Dizziness [Not Recovered/Not Resolved]
  - Chest discomfort [Recovering/Resolving]
  - Sensory loss [Not Recovered/Not Resolved]
  - Grip strength decreased [Recovered/Resolved with Sequelae]
  - Migraine [Recovered/Resolved with Sequelae]
  - Central nervous system lesion [Recovered/Resolved with Sequelae]
  - Vertigo [Recovering/Resolving]
  - Mobility decreased [Recovered/Resolved with Sequelae]
